FAERS Safety Report 9953277 (Version 2)
Quarter: 2014Q1

REPORT INFORMATION
  Report Type: Report from Study
  Country: US (occurrence: US)
  Receive Date: 20140304
  Receipt Date: 20140304
  Transmission Date: 20141002
  Serious: No
  Sender: FDA-Public Use
  Company Number: US-ABBVIE-13P-163-1069078-00

PATIENT
  Age: 46 Year
  Sex: Female

DRUGS (5)
  1. HUMIRA [Suspect]
     Indication: COLITIS ULCERATIVE
     Dates: start: 20130218
  2. VALTREX [Concomitant]
     Indication: PROPHYLAXIS
     Dosage: 500MG DAILY
  3. TYLENOL [Concomitant]
     Indication: PRODUCT USED FOR UNKNOWN INDICATION
  4. LOMOTIL [Concomitant]
     Indication: PRODUCT USED FOR UNKNOWN INDICATION
  5. NASONEX [Concomitant]
     Indication: SEASONAL ALLERGY

REACTIONS (10)
  - Injection site bruising [Recovering/Resolving]
  - Injection site discolouration [Recovering/Resolving]
  - Injection site induration [Recovering/Resolving]
  - Injection site warmth [Recovering/Resolving]
  - Injection site pain [Recovering/Resolving]
  - Injection site erythema [Recovering/Resolving]
  - Injection site papule [Recovering/Resolving]
  - Injection site pruritus [Recovering/Resolving]
  - Injection site reaction [Not Recovered/Not Resolved]
  - Injection site pain [Not Recovered/Not Resolved]
